FAERS Safety Report 10663994 (Version 1)
Quarter: 2014Q4

REPORT INFORMATION
  Report Type: Spontaneous
  Country: None (occurrence: None)
  Receive Date: 20141218
  Receipt Date: 20141218
  Transmission Date: 20150529
  Serious: Yes (Other)
  Sender: FDA-Public Use
  Company Number: None

PATIENT
  Age: 22 Year
  Sex: Male
  Weight: 66 kg

DRUGS (1)
  1. NEUTROGENA ACNE SCRUB [Suspect]
     Active Substance: SALICYLIC ACID
     Indication: ACNE
     Dates: start: 20141214, end: 20141215

REACTIONS (5)
  - Chemical injury [None]
  - Swelling face [None]
  - Eye swelling [None]
  - Dry skin [None]
  - Pruritus [None]

NARRATIVE: CASE EVENT DATE: 20141215
